FAERS Safety Report 23466428 (Version 1)
Quarter: 2024Q1

REPORT INFORMATION
  Report Type: Spontaneous
  Country: US (occurrence: None)
  Receive Date: 20240131
  Receipt Date: 20240131
  Transmission Date: 20240410
  Serious: Yes (Other)
  Sender: FDA-Public Use
  Company Number: None

PATIENT
  Age: 66 Year
  Sex: Female

DRUGS (4)
  1. OZEMPIC [Suspect]
     Active Substance: SEMAGLUTIDE
     Indication: Diabetes mellitus
     Dates: start: 20231227, end: 20231227
  2. WARFARIN [Concomitant]
     Active Substance: WARFARIN
  3. INSULIN NOS [Concomitant]
     Active Substance: INSULIN NOS
  4. LOSARTAN [Concomitant]
     Active Substance: LOSARTAN

REACTIONS (7)
  - Drug ineffective [None]
  - Injection site mass [None]
  - Injection site erythema [None]
  - Gastrooesophageal reflux disease [None]
  - Musculoskeletal chest pain [None]
  - Nausea [None]
  - Food aversion [None]

NARRATIVE: CASE EVENT DATE: 20231227
